FAERS Safety Report 24588064 (Version 1)
Quarter: 2024Q4

REPORT INFORMATION
  Report Type: Spontaneous
  Country: SE (occurrence: SE)
  Receive Date: 20241107
  Receipt Date: 20241107
  Transmission Date: 20250115
  Serious: Yes (Other)
  Sender: BAXTER
  Company Number: None

PATIENT
  Age: 49 Year
  Sex: Female

DRUGS (10)
  1. CYCLOPHOSPHAMIDE [Suspect]
     Active Substance: CYCLOPHOSPHAMIDE
     Indication: Follicular lymphoma
     Dosage: A PART OF 6 R- CHOEP-CURES 2017-18, START DATE: 2017, STOP DATE: 2017
     Route: 065
  2. DOXORUBICIN [Suspect]
     Active Substance: DOXORUBICIN
     Indication: Follicular lymphoma
     Dosage: A PART OF 6 R- CHOEP-CURES 2017-18, START DATE: 2017, STOP DATE: 2018
     Route: 065
  3. BENDAMUSTINE [Suspect]
     Active Substance: BENDAMUSTINE
     Dosage: A PART OF FOUR R-BENDA-CURES 2018, START DATE: 2018, STOP DATE: 2018
     Route: 065
  4. RITUXIMAB [Suspect]
     Active Substance: RITUXIMAB
     Dosage: A PART OF 6 R- CHOEP-CURES 2017-18, AND 4 R-BENDA-CURES 2018, START DATE: 2017, STOP DATE: 2018
     Route: 065
  5. ETOPOSIDE [Suspect]
     Active Substance: ETOPOSIDE
     Dosage: A PART OF 6 R- CHOEP-CURES 2017-18, START DATE: 2017, STOP DATE: 2018
     Route: 065
  6. YESCARTA [Suspect]
     Active Substance: AXICABTAGENE CILOLEUCEL
     Dosage: AS A PART OF CAR-T, START DATE: 2021, STOP DATE: 2021
     Route: 065
  7. OBINUTUZUMAB [Suspect]
     Active Substance: OBINUTUZUMAB
     Dosage: OBINUTUZUMAB + LENALIDOMIDE, START DATE: 2020, STOP DATE: 2020
     Route: 065
  8. LENALIDOMIDE [Suspect]
     Active Substance: LENALIDOMIDE
     Dosage: OBINUTUZUMAB + LENALIDOMIDE, START DATE: 2020, STOP DATE: 2020
     Route: 065
  9. PREDNISOLONE [Suspect]
     Active Substance: PREDNISOLONE
     Indication: Follicular lymphoma
     Dosage: A PART OF 6 R- CHOEP-CURES 2017-18, START DATE: 2017, STOP DATE: 2018
     Route: 065
  10. VINCRISTINE [Suspect]
     Active Substance: VINCRISTINE
     Indication: Follicular lymphoma
     Dosage: A PART OF 6 R- CHOEP-CURES 2017-18, START DATE: 2017, STOP DATE: 2018
     Route: 065

REACTIONS (2)
  - Myelodysplastic syndrome [Unknown]
  - Second primary malignancy [Unknown]
